APPROVED DRUG PRODUCT: DOXEPIN HYDROCHLORIDE
Active Ingredient: DOXEPIN HYDROCHLORIDE
Strength: EQ 50MG BASE
Dosage Form/Route: CAPSULE;ORAL
Application: A210700 | Product #003 | TE Code: BX
Applicant: ZYDUS LIFESCIENCES LTD
Approved: Mar 23, 2023 | RLD: No | RS: No | Type: RX